FAERS Safety Report 5554697-3 (Version None)
Quarter: 2007Q4

REPORT INFORMATION
  Report Type: 
  Country: None (occurrence: None)
  Receive Date: 20071213
  Receipt Date: 20071130
  Transmission Date: 20080405
  Serious: Yes (Hospitalization)
  Sender: FDA-Public Use
  Company Number: JP-GENENTECH-242406

PATIENT
  Sex: Male

DRUGS (27)
  1. BEVACIZUMAB [Suspect]
     Indication: RECTAL CANCER
     Dosage: 273 MG, QD
     Route: 042
     Dates: start: 20060116, end: 20070515
  2. OXALIPLATIN [Suspect]
     Indication: RECTAL CANCER
     Dosage: 132 MG, QD
     Route: 042
     Dates: start: 20060116, end: 20070515
  3. LEUCOVORIN CALCIUM [Suspect]
     Indication: RECTAL CANCER
     Dosage: 155 MG, QD
     Route: 042
     Dates: start: 20060116, end: 20070516
  4. FLUOROURACIL [Suspect]
     Indication: RECTAL CANCER
     Dosage: 620 MG, QD
     Route: 042
     Dates: start: 20060116, end: 20070516
  5. FLUOROURACIL [Suspect]
     Dosage: 465 MG, UNK
     Route: 042
     Dates: start: 20060116
  6. FLUOROURACIL [Suspect]
     Dosage: 888 MG, UNK
     Route: 042
     Dates: start: 20060116
  7. NORVASC [Concomitant]
     Indication: DRUG USE FOR UNKNOWN INDICATION
     Dates: end: 20060404
  8. ENALAPRIL MALEATE [Concomitant]
     Indication: DRUG USE FOR UNKNOWN INDICATION
  9. MAGNESIUM OXIDE [Concomitant]
     Indication: DRUG USE FOR UNKNOWN INDICATION
  10. IOPAMIDOL [Concomitant]
     Indication: DRUG USE FOR UNKNOWN INDICATION
     Dates: start: 20060227
  11. AMLODIPINE BESYLATE [Concomitant]
     Indication: DRUG USE FOR UNKNOWN INDICATION
     Dosage: UNK, UNK
     Dates: start: 20060404
  12. CEFCAPENE PIVOXIL HYDROCHLORIDE [Concomitant]
     Indication: DRUG USE FOR UNKNOWN INDICATION
     Dates: start: 20070306, end: 20070309
  13. LOXONIN [Concomitant]
     Indication: DRUG USE FOR UNKNOWN INDICATION
     Dosage: UNK, UNK
     Dates: start: 20070306, end: 20070309
  14. BENZALKONIUM CHLORIDE [Concomitant]
     Indication: RASH
     Dates: start: 20060201, end: 20060418
  15. LOPEMIN [Concomitant]
     Indication: DIARRHOEA
     Dosage: UNK, UNK
     Dates: start: 20060318, end: 20060320
  16. BIOFERMIN [Concomitant]
     Indication: DIARRHOEA
     Dates: start: 20060317, end: 20060320
  17. ZINC OXIDE [Concomitant]
     Indication: MALARIA
     Dates: start: 20060523, end: 20060530
  18. ACETIC ACID [Concomitant]
     Indication: RASH
     Dates: start: 20060523, end: 20060530
  19. AMINOBENZOIC ACID [Concomitant]
     Indication: RASH
     Dates: start: 20060523, end: 20060530
  20. RESTAMIN [Concomitant]
     Indication: PRURITUS
     Dates: start: 20060613, end: 20060620
  21. BETAMETHASONE/GENTAMICIN [Concomitant]
     Indication: RASH
     Dates: start: 20060622, end: 20060627
  22. ALLELOCK [Concomitant]
     Indication: RASH
     Dates: start: 20060705
  23. ANTACID (UNK INGREDIENTS) [Concomitant]
     Indication: NAUSEA
     Dates: start: 20061206
  24. SOLU-CORTEF [Concomitant]
     Indication: RASH
     Dates: start: 20070130
  25. CHLOR-TRIMETON [Concomitant]
     Indication: RASH
     Dates: start: 20070319
  26. ENALAPRIL MALEATE [Concomitant]
     Indication: DRUG USE FOR UNKNOWN INDICATION
     Dates: start: 20060608
  27. KYTRIL [Concomitant]
     Indication: DRUG USE FOR UNKNOWN INDICATION
     Dates: start: 20070220

REACTIONS (1)
  - RENAL FAILURE ACUTE [None]
